FAERS Safety Report 25299859 (Version 1)
Quarter: 2025Q2

REPORT INFORMATION
  Report Type: Spontaneous
  Country: US (occurrence: US)
  Receive Date: 20250512
  Receipt Date: 20250512
  Transmission Date: 20250716
  Serious: Yes (Hospitalization, Other)
  Sender: Unknown Manufacturer
  Company Number: US-MICRO LABS LIMITED-ML2023-06131

PATIENT
  Age: 35 Year
  Sex: Female

DRUGS (1)
  1. BUPROPION [Suspect]
     Active Substance: BUPROPION
     Indication: Depression

REACTIONS (9)
  - Cardiogenic shock [Recovered/Resolved]
  - Areflexia [Recovered/Resolved]
  - Pupil fixed [Recovered/Resolved]
  - Toxicity to various agents [Recovered/Resolved]
  - Hypotension [Recovered/Resolved]
  - Seizure [Recovered/Resolved]
  - Arrhythmia [Recovered/Resolved]
  - Ventricular tachycardia [Recovered/Resolved]
  - Intentional overdose [Unknown]
